FAERS Safety Report 12788234 (Version 2)
Quarter: 2016Q4

REPORT INFORMATION
  Report Type: Spontaneous
  Country: GB (occurrence: GB)
  Receive Date: 20160928
  Receipt Date: 20161107
  Transmission Date: 20170207
  Serious: Yes (Other)
  Sender: FDA-Public Use
  Company Number: GB-WARNER CHILCOTT, LLC-1057808

PATIENT
  Sex: Male

DRUGS (1)
  1. ASACOL HD [Suspect]
     Active Substance: MESALAMINE
     Indication: CROHN^S DISEASE
     Route: 048
     Dates: start: 2015

REACTIONS (5)
  - Weight increased [Unknown]
  - Syncope [Unknown]
  - Loss of consciousness [Unknown]
  - Contusion [Unknown]
  - Ocular hyperaemia [Unknown]
